FAERS Safety Report 23781583 (Version 20)
Quarter: 2025Q4

REPORT INFORMATION
  Report Type: Report from Study
  Country: US (occurrence: US)
  Receive Date: 20240425
  Receipt Date: 20251208
  Transmission Date: 20260118
  Serious: Yes (Hospitalization, Other)
  Sender: TAKEDA
  Company Number: US-TAKEDA-2024TUS009720

PATIENT
  Age: 38 Year
  Sex: Female
  Weight: 57 kg

DRUGS (44)
  1. HUMAN IMMUNOGLOBULIN G [Suspect]
     Active Substance: HUMAN IMMUNOGLOBULIN G
     Indication: Immune system disorder
     Dosage: 60 GRAM
  2. HUMAN IMMUNOGLOBULIN G [Suspect]
     Active Substance: HUMAN IMMUNOGLOBULIN G
     Dosage: 60 GRAM
  3. HUMAN IMMUNOGLOBULIN G [Suspect]
     Active Substance: HUMAN IMMUNOGLOBULIN G
     Dosage: 60 GRAM, Q4WEEKS
  4. HUMAN IMMUNOGLOBULIN G [Suspect]
     Active Substance: HUMAN IMMUNOGLOBULIN G
     Dosage: 60 GRAM, Q4WEEKS
  5. HUMAN IMMUNOGLOBULIN G [Suspect]
     Active Substance: HUMAN IMMUNOGLOBULIN G
     Dosage: 60 GRAM
  6. EPINEPHRINE [Concomitant]
     Active Substance: EPINEPHRINE
     Dosage: UNK
  7. ACETAMINOPHEN [Concomitant]
     Active Substance: ACETAMINOPHEN
     Dosage: UNK
  8. SODIUM CHLORIDE [Concomitant]
     Active Substance: SODIUM CHLORIDE
     Dosage: UNK
  9. LACTULOSE [Concomitant]
     Active Substance: LACTULOSE
     Dosage: UNK
  10. MAGNESIUM OXIDE [Concomitant]
     Active Substance: MAGNESIUM OXIDE
     Dosage: UNK
  11. PANTOPRAZOLE SODIUM [Concomitant]
     Active Substance: PANTOPRAZOLE SODIUM
     Dosage: UNK
  12. ROBAXIN [Concomitant]
     Active Substance: METHOCARBAMOL
     Dosage: UNK
  13. POTASSIUM CHLORIDE [Concomitant]
     Active Substance: POTASSIUM CHLORIDE
     Dosage: UNK
  14. LIDOCAINE [Concomitant]
     Active Substance: LIDOCAINE
     Dosage: UNK
  15. HEPARIN SODIUM [Concomitant]
     Active Substance: HEPARIN SODIUM
     Dosage: UNK
  16. SUCRALFATE [Concomitant]
     Active Substance: SUCRALFATE
     Dosage: UNK
  17. THIAMINE HYDROCHLORIDE [Concomitant]
     Active Substance: THIAMINE HYDROCHLORIDE
     Dosage: UNK
  18. VITAMIN B [Concomitant]
     Active Substance: VITAMIN B
     Dosage: UNK
  19. BENTYL [Concomitant]
     Active Substance: DICYCLOMINE HYDROCHLORIDE
     Dosage: UNK
  20. DIPHENHYDRAMINE HYDROCHLORIDE [Concomitant]
     Active Substance: DIPHENHYDRAMINE HYDROCHLORIDE
     Dosage: UNK
  21. MELATONIN [Concomitant]
     Active Substance: MELATONIN
     Dosage: UNK
  22. FAMOTIDINE [Concomitant]
     Active Substance: FAMOTIDINE
     Dosage: UNK
  23. INDERAL LA [Concomitant]
     Active Substance: PROPRANOLOL HYDROCHLORIDE
     Dosage: UNK
  24. PROMETHAZINE HYDROCHLORIDE [Concomitant]
     Active Substance: PROMETHAZINE HYDROCHLORIDE
     Dosage: UNK
  25. BACLOFEN [Concomitant]
     Active Substance: BACLOFEN
     Dosage: UNK
  26. MELOXICAM [Concomitant]
     Active Substance: MELOXICAM
     Dosage: UNK
  27. SPIRONOLACTONE [Concomitant]
     Active Substance: SPIRONOLACTONE
     Dosage: UNK
  28. DIPHENHYDRAMINE [Concomitant]
     Active Substance: DIPHENHYDRAMINE
     Dosage: UNK
  29. LASIX [Concomitant]
     Active Substance: FUROSEMIDE
     Dosage: UNK
  30. MIRALAX [Concomitant]
     Active Substance: POLYETHYLENE GLYCOL 3350
     Dosage: UNK
  31. SUMATRIPTAN SUCCINATE [Concomitant]
     Active Substance: SUMATRIPTAN SUCCINATE
     Dosage: UNK
  32. TRAZODONE HCL [Concomitant]
     Active Substance: TRAZODONE HYDROCHLORIDE
     Dosage: UNK
  33. CELEXA [Concomitant]
     Active Substance: CITALOPRAM HYDROBROMIDE
     Dosage: UNK
  34. XANAX [Concomitant]
     Active Substance: ALPRAZOLAM
     Dosage: UNK
  35. VITAMIN D [Concomitant]
     Active Substance: VITAMIN D NOS
     Dosage: UNK
  36. LAMOTRIGINE [Concomitant]
     Active Substance: LAMOTRIGINE
     Dosage: UNK
  37. VITAMIN A [Concomitant]
     Active Substance: VITAMIN A
     Dosage: UNK
  38. HYDROXYZINE HYDROCHLORIDE [Concomitant]
     Active Substance: HYDROXYZINE HYDROCHLORIDE
     Dosage: UNK
  39. PAXIL [Concomitant]
     Active Substance: PAROXETINE HYDROCHLORIDE
     Dosage: UNK
  40. VITAMIN E [Concomitant]
     Active Substance: .ALPHA.-TOCOPHEROL
     Dosage: UNK
  41. DICYCLOMINE HYDROCHLORIDE [Concomitant]
     Active Substance: DICYCLOMINE HYDROCHLORIDE
     Dosage: UNK
  42. DILTIAZEM [Concomitant]
     Active Substance: DILTIAZEM
     Dosage: UNK
  43. TRAMADOL HCL [Concomitant]
     Active Substance: TRAMADOL HYDROCHLORIDE
     Dosage: UNK
  44. MAGNESIUM [Concomitant]
     Active Substance: MAGNESIUM
     Dosage: UNK

REACTIONS (59)
  - Blood potassium decreased [Unknown]
  - Grip strength decreased [Unknown]
  - Walking aid user [Not Recovered/Not Resolved]
  - Ascites [Unknown]
  - Fluid retention [Unknown]
  - Acute hepatic failure [Unknown]
  - Escherichia sepsis [Unknown]
  - Hepatic cirrhosis [Unknown]
  - Neuropathy peripheral [Unknown]
  - Chronic inflammatory demyelinating polyradiculoneuropathy [Unknown]
  - Arthritis infective [Unknown]
  - Supraventricular tachycardia [Unknown]
  - Sepsis [Unknown]
  - Jaundice [Unknown]
  - Cardiac murmur [Unknown]
  - Thrombosis [Unknown]
  - Contusion [Unknown]
  - Pallor [Unknown]
  - Asthenia [Not Recovered/Not Resolved]
  - Abdominal pain upper [Unknown]
  - Abdominal pain [Unknown]
  - Fatigue [Not Recovered/Not Resolved]
  - Loss of control of legs [Unknown]
  - Confusional state [Unknown]
  - Balance disorder [Unknown]
  - Ligament sprain [Unknown]
  - Anal incontinence [Unknown]
  - Gait disturbance [Unknown]
  - Fall [Unknown]
  - Weight increased [Unknown]
  - Taste disorder [Unknown]
  - Crying [Unknown]
  - Dermatitis contact [Unknown]
  - Ankle fracture [Unknown]
  - Dry skin [Unknown]
  - Depression [Unknown]
  - Urinary tract infection [Unknown]
  - Skin warm [Unknown]
  - Constipation [Unknown]
  - Abdominal discomfort [Unknown]
  - Epistaxis [Unknown]
  - Swelling [Unknown]
  - Infusion site erythema [Unknown]
  - Oedema peripheral [Unknown]
  - Decreased appetite [Unknown]
  - Anxiety [Unknown]
  - Pain [Not Recovered/Not Resolved]
  - Oedema [Unknown]
  - Dyspnoea [Unknown]
  - Tremor [Unknown]
  - Vomiting [Unknown]
  - Hypotension [Unknown]
  - Pruritus [Recovered/Resolved]
  - Headache [Unknown]
  - Urticaria [Unknown]
  - Nausea [Recovered/Resolved]
  - Diarrhoea [Unknown]
  - Abdominal distension [Unknown]
  - Ammonia increased [Unknown]

NARRATIVE: CASE EVENT DATE: 20240408
